FAERS Safety Report 11441868 (Version 2)
Quarter: 2015Q3

REPORT INFORMATION
  Report Type: Spontaneous
  Country: US (occurrence: US)
  Receive Date: 20150901
  Receipt Date: 20150904
  Transmission Date: 20151125
  Serious: Yes (Life-Threatening)
  Sender: FDA-Public Use
  Company Number: CHPA2015US010113

PATIENT
  Age: 65 Year
  Sex: Female

DRUGS (3)
  1. TRANSDERM SCOP [Suspect]
     Active Substance: SCOPOLAMINE
     Dosage: 1 DF, QD FOR TWO DAYS
     Route: 062
     Dates: start: 2015
  2. TRANSDERM SCOP [Suspect]
     Active Substance: SCOPOLAMINE
     Indication: VERTIGO
     Dosage: UNK, QD
     Route: 062
     Dates: start: 201506
  3. TRANSDERM SCOP [Suspect]
     Active Substance: SCOPOLAMINE
     Dosage: 1 DF, FOR SIX DAYS
     Route: 062
     Dates: start: 201506

REACTIONS (10)
  - Feeling abnormal [Recovering/Resolving]
  - Headache [Recovered/Resolved]
  - Chills [Recovered/Resolved]
  - Heart rate abnormal [Recovered/Resolved]
  - Drug withdrawal syndrome [Unknown]
  - Incorrect drug administration duration [Unknown]
  - Mobility decreased [Recovered/Resolved]
  - Off label use [Unknown]
  - Dysphagia [Recovered/Resolved]
  - Nausea [Recovered/Resolved]

NARRATIVE: CASE EVENT DATE: 201506
